FAERS Safety Report 15948036 (Version 2)
Quarter: 2019Q1

REPORT INFORMATION
  Report Type: Report from Study
  Country: ZA (occurrence: ZA)
  Receive Date: 20190212
  Receipt Date: 20190214
  Transmission Date: 20190417
  Serious: Yes (Disabling)
  Sender: FDA-Public Use
  Company Number: ZA-SA-2019SA033197

PATIENT
  Age: 49 Year
  Sex: Male

DRUGS (4)
  1. OPTISULIN (INSULIN GLARGINE) [Suspect]
     Active Substance: INSULIN GLARGINE
     Dosage: 24 U, HS
     Dates: start: 20181029
  2. VILDAGLIPTIN [Concomitant]
     Active Substance: VILDAGLIPTIN
     Dosage: 50 MG, BID AT BS (BEFORE SUPPER), BB (BEFORE BREAKFAST)
     Dates: start: 20181029
  3. NO STUDY DRUG GIVEN [Suspect]
     Active Substance: UNSPECIFIED INGREDIENT
     Dosage: UNK
  4. GLUCOPHAGE [Concomitant]
     Active Substance: METFORMIN HYDROCHLORIDE
     Dosage: 1000 MG, BID AT BS (BEFORE SUPPER), BB (BEFORE BREAKFAST)
     Dates: start: 20181026

REACTIONS (5)
  - Nasopharyngitis [Not Recovered/Not Resolved]
  - Bladder discomfort [Unknown]
  - Sinus disorder [Not Recovered/Not Resolved]
  - Dysuria [Unknown]
  - Glycosylated haemoglobin increased [Unknown]

NARRATIVE: CASE EVENT DATE: 20190131
